FAERS Safety Report 10736023 (Version 10)
Quarter: 2015Q4

REPORT INFORMATION
  Report Type: Report from Study
  Country: US (occurrence: US)
  Receive Date: 20150126
  Receipt Date: 20151102
  Transmission Date: 20160304
  Serious: Yes (Hospitalization, Other)
  Sender: FDA-Public Use
  Company Number: US-ALEXION PHARMACEUTICALS INC-A201500149

PATIENT
  Sex: Male

DRUGS (2)
  1. SOLIRIS [Suspect]
     Active Substance: ECULIZUMAB
     Indication: PAROXYSMAL NOCTURNAL HAEMOGLOBINURIA
     Dosage: UNK
     Route: 042
  2. PROGRAF [Suspect]
     Active Substance: TACROLIMUS\TACROLIMUS ANHYDROUS
     Indication: PRODUCT USED FOR UNKNOWN INDICATION
     Route: 065

REACTIONS (24)
  - Abdominal distension [Unknown]
  - Puncture site haemorrhage [Recovering/Resolving]
  - Chronic hepatic failure [Unknown]
  - Unevaluable event [Unknown]
  - Vessel puncture site haematoma [Recovering/Resolving]
  - Platelet count abnormal [Unknown]
  - Hepatic function abnormal [Unknown]
  - Renal impairment [Recovering/Resolving]
  - Haemoglobin decreased [Unknown]
  - Drug level increased [Recovering/Resolving]
  - Biopsy liver [Unknown]
  - Liver function test abnormal [Not Recovered/Not Resolved]
  - Unevaluable event [Recovering/Resolving]
  - Procedural haemorrhage [Recovering/Resolving]
  - Epstein-Barr viraemia [Unknown]
  - Abdominal pain [Unknown]
  - International normalised ratio increased [Unknown]
  - Abdominal pain [Unknown]
  - Condition aggravated [Unknown]
  - Malaise [Unknown]
  - Haemoglobin abnormal [Unknown]
  - Constipation [Unknown]
  - Liver function test abnormal [Unknown]
  - Hypoaesthesia [Unknown]

NARRATIVE: CASE EVENT DATE: 20150112
